FAERS Safety Report 15459215 (Version 1)
Quarter: 2018Q4

REPORT INFORMATION
  Report Type: Spontaneous
  Country: JP (occurrence: JP)
  Receive Date: 20181003
  Receipt Date: 20181003
  Transmission Date: 20190204
  Serious: Yes (Other)
  Sender: FDA-Public Use
  Company Number: JP-PFIZER INC-2018312058

PATIENT
  Age: 52 Year
  Sex: Female

DRUGS (2)
  1. EFFEXOR [Suspect]
     Active Substance: VENLAFAXINE HYDROCHLORIDE
     Indication: DEPRESSION
     Dosage: 150 MG, DAILY
     Route: 048
  2. REFLEX [Suspect]
     Active Substance: MIRTAZAPINE
     Dosage: 30 MG, DAILY

REACTIONS (3)
  - Delusion [Recovering/Resolving]
  - Hallucination, auditory [Recovering/Resolving]
  - Delirium [Not Recovered/Not Resolved]

NARRATIVE: CASE EVENT DATE: 20180725
